FAERS Safety Report 13503300 (Version 2)
Quarter: 2017Q2

REPORT INFORMATION
  Report Type: Spontaneous
  Country: US (occurrence: US)
  Receive Date: 20170502
  Receipt Date: 20170602
  Transmission Date: 20170830
  Serious: No
  Sender: FDA-Public Use
  Company Number: US-PFIZER INC-2017191505

PATIENT
  Age: 54 Year
  Sex: Female
  Weight: 88 kg

DRUGS (4)
  1. COMETA [Concomitant]
     Indication: BONE DISORDER
     Dosage: EVERY 3 MONTHS, THROUGH A PORT FOR 30 MINUTES
     Dates: start: 2009
  2. MOTRIN [Concomitant]
     Active Substance: IBUPROFEN
     Indication: PAIN
     Dosage: 200 MG, WEEKLY
  3. FASLODEX [Concomitant]
     Active Substance: FULVESTRANT
     Indication: BONE DISORDER
     Dosage: 500 MG, MONTHLY
  4. IBRANCE [Suspect]
     Active Substance: PALBOCICLIB
     Indication: BREAST CANCER METASTATIC
     Dosage: 125 MG, 1X/DAY, AT NIGHT
     Route: 048
     Dates: start: 20170327

REACTIONS (1)
  - White blood cell count decreased [Recovering/Resolving]

NARRATIVE: CASE EVENT DATE: 201704
